FAERS Safety Report 6338468-6 (Version None)
Quarter: 2009Q3

REPORT INFORMATION
  Report Type: 
  Country: None (occurrence: None)
  Receive Date: 20090901
  Receipt Date: 20090818
  Transmission Date: 20100115
  Serious: Yes (Hospitalization)
  Sender: FDA-Public Use
  Company Number: 001564

PATIENT
  Age: 51 Year
  Sex: Male
  Weight: 78 kg

DRUGS (13)
  1. LACOSAMIDE [Suspect]
     Indication: CONVULSION
     Dosage: 100 MG BID ORAL
     Route: 048
     Dates: start: 20090701
  2. MAGNESIUM OXIDE [Concomitant]
  3. CELEXA [Concomitant]
  4. DILAUDID [Concomitant]
  5. NOVOLOG [Concomitant]
  6. LAMICTAL [Concomitant]
  7. RISPERDAL [Concomitant]
  8. AMBIEN [Concomitant]
  9. PRILOSEC [Concomitant]
  10. ZOFRAN [Concomitant]
  11. PREDNISONE TAB [Concomitant]
  12. OXYCODONE [Concomitant]
  13. CELLCEPT [Concomitant]

REACTIONS (5)
  - ALANINE AMINOTRANSFERASE INCREASED [None]
  - ASPARTATE AMINOTRANSFERASE INCREASED [None]
  - FUNGAL INFECTION [None]
  - SEPSIS [None]
  - URINARY TRACT INFECTION [None]
